FAERS Safety Report 12478946 (Version 2)
Quarter: 2016Q3

REPORT INFORMATION
  Report Type: Spontaneous
  Country: JP (occurrence: JP)
  Receive Date: 20160620
  Receipt Date: 20160719
  Transmission Date: 20161109
  Serious: Yes (Hospitalization)
  Sender: FDA-Public Use
  Company Number: JP-ORION CORPORATION ORION PHARMA-ENT 2016-0100

PATIENT
  Age: 65 Year
  Sex: Male

DRUGS (13)
  1. ROTIGOTINE [Suspect]
     Active Substance: ROTIGOTINE
     Route: 065
  2. ZONISAMIDE. [Concomitant]
     Active Substance: ZONISAMIDE
     Route: 065
  3. CARBIDOPA + L-DOPA [Concomitant]
     Active Substance: CARBIDOPA\LEVODOPA
     Dosage: 64 YEARS OF AGE: 500 MG 5 TIMES; 500 MG IN 4 DIVIDED CASES
     Route: 065
  4. CARBIDOPA + L-DOPA [Concomitant]
     Active Substance: CARBIDOPA\LEVODOPA
     Dosage: 65 YEARS OF AGE; 500 MG IN 4 DIVIDED DOSES
     Route: 065
  5. ROTIGOTINE [Suspect]
     Active Substance: ROTIGOTINE
     Route: 065
  6. ROPINIROL [Concomitant]
     Active Substance: ROPINIROLE
     Route: 065
  7. ROPINIROL [Concomitant]
     Active Substance: ROPINIROLE
     Route: 065
  8. CARBIDOPA + L-DOPA [Concomitant]
     Active Substance: CARBIDOPA\LEVODOPA
     Dosage: 59 YEARS OF AGE
     Route: 065
  9. CARBIDOPA + L-DOPA [Concomitant]
     Active Substance: CARBIDOPA\LEVODOPA
     Dosage: 62 YEARS OF AGE
     Route: 065
  10. CARBIDOPA + L-DOPA [Concomitant]
     Active Substance: CARBIDOPA\LEVODOPA
     Dosage: 63 YEARS OF AGE
     Route: 065
  11. AMANTADINE [Suspect]
     Active Substance: AMANTADINE
     Indication: PARKINSON^S DISEASE
     Route: 048
  12. COMTAN [Suspect]
     Active Substance: ENTACAPONE
     Indication: PARKINSON^S DISEASE
     Route: 048
  13. ROTIGOTINE [Suspect]
     Active Substance: ROTIGOTINE
     Route: 065

REACTIONS (8)
  - Nausea [Unknown]
  - Somnolence [Unknown]
  - Freezing phenomenon [Unknown]
  - Muscle rigidity [Unknown]
  - Cognitive disorder [Unknown]
  - On and off phenomenon [Recovering/Resolving]
  - Hypokinesia [Unknown]
  - Reduced facial expression [Unknown]
